FAERS Safety Report 8295353-0 (Version None)
Quarter: 2012Q2

REPORT INFORMATION
  Report Type: 
  Country: None (occurrence: None)
  Receive Date: 20120416
  Receipt Date: 20120331
  Transmission Date: 20120825
  Serious: Yes (Other)
  Sender: FDA-Public Use
  Company Number: 2012AP000955

PATIENT
  Age: 50 Year
  Sex: Male

DRUGS (1)
  1. ZOLPIDEM TARTRATE [Suspect]
     Indication: PRODUCT USED FOR UNKNOWN INDICATION
     Dosage: 10 MG;

REACTIONS (5)
  - AUTOMATISM [None]
  - ACCIDENTAL EXPOSURE [None]
  - AMNESIA [None]
  - ATAXIA [None]
  - CONFUSIONAL STATE [None]
